FAERS Safety Report 16530334 (Version 1)
Quarter: 2019Q3

REPORT INFORMATION
  Report Type: Spontaneous
  Country: DK (occurrence: DK)
  Receive Date: 20190704
  Receipt Date: 20190704
  Transmission Date: 20191004
  Serious: Yes (Hospitalization)
  Sender: FDA-Public Use
  Company Number: DK-UCBSA-2019028506

PATIENT
  Age: 34 Year
  Sex: Female
  Weight: 80 kg

DRUGS (2)
  1. LEVETIRACETAM. [Concomitant]
     Active Substance: LEVETIRACETAM
     Indication: EPILEPSY
     Dosage: 3500 MG DAILY
     Route: 048
     Dates: start: 20180801
  2. VIMPAT [Suspect]
     Active Substance: LACOSAMIDE
     Indication: EPILEPSY
     Dosage: 400 MG DAILY
     Route: 048
     Dates: start: 20190329

REACTIONS (3)
  - Seizure [Recovering/Resolving]
  - Visual impairment [Recovering/Resolving]
  - Dyspnoea [Recovering/Resolving]

NARRATIVE: CASE EVENT DATE: 20190617
